FAERS Safety Report 8817485 (Version 2)
Quarter: 2012Q4

REPORT INFORMATION
  Report Type: Report from Study
  Country: IT (occurrence: IT)
  Receive Date: 20121001
  Receipt Date: 20121015
  Transmission Date: 20130627
  Serious: Yes (Death, Life-Threatening, Hospitalization)
  Sender: FDA-Public Use
  Company Number: IT-INCYTE CORPORATION-2012IN001670

PATIENT
  Age: 55 None
  Sex: Female
  Weight: 38 kg

DRUGS (7)
  1. INC424 [Suspect]
     Indication: MYELOFIBROSIS
     Dosage: 20 mg, bid
     Dates: start: 20120718, end: 20120802
  2. INC424 [Suspect]
     Dosage: UNK
     Route: 048
     Dates: start: 20120803, end: 20120803
  3. FENTANYL [Concomitant]
     Dosage: UNK
     Dates: start: 20120809, end: 20120917
  4. ZYVOXID [Concomitant]
     Dosage: UNK
     Dates: start: 20120911, end: 20120917
  5. TYGACIL [Concomitant]
     Dosage: UNK
     Dates: start: 20120905, end: 20120917
  6. ACICLOVIR [Concomitant]
     Dosage: UNK
     Dates: start: 20120821, end: 20120917
  7. GENTAMICIN [Concomitant]
     Dosage: UNK
     Dates: start: 20120918, end: 20120930

REACTIONS (4)
  - Necrotising fasciitis [Recovered/Resolved]
  - Cardio-respiratory arrest [Fatal]
  - Febrile neutropenia [Recovered/Resolved]
  - Pyrexia [Not Recovered/Not Resolved]
